FAERS Safety Report 8600721-0 (Version None)
Quarter: 2012Q3

REPORT INFORMATION
  Report Type: 
  Country: None (occurrence: None)
  Receive Date: 20120817
  Receipt Date: 20120803
  Transmission Date: 20120928
  Serious: Yes (Hospitalization, Other)
  Sender: FDA-Public Use
  Company Number: IT-RANBAXY-2012RR-58621

PATIENT
  Age: 91 Year
  Sex: Female

DRUGS (11)
  1. GLYBURIDE AND METFORMIN HYDROCHLORIDE [Interacting]
     Indication: TYPE 2 DIABETES MELLITUS
     Dosage: 2.5/400 MG, TID
     Route: 048
  2. NADROPARIN CALCIUM [Interacting]
     Indication: ISCHAEMIC STROKE
     Dosage: 3800 IU/DAY
     Route: 058
  3. TRAMADOL HCL [Interacting]
     Indication: PRODUCT USED FOR UNKNOWN INDICATION
     Dosage: XX DROPS WHEN REQUIRED
     Route: 048
  4. BUPRENORPHINE [Interacting]
     Indication: PAIN
     Dosage: 35 A?G, Q1H
     Route: 062
  5. LANSOPRAZOLE [Suspect]
     Indication: PRODUCT USED FOR UNKNOWN INDICATION
     Dosage: 30 MG, UNK
     Route: 065
  6. ASPIRIN [Suspect]
     Indication: ANTIPLATELET THERAPY
     Dosage: 100 MG, QD
     Route: 048
  7. LEVOFLOXACIN [Suspect]
     Dosage: 500 MG/DAY
     Route: 048
  8. ENALAPRIL MALEATE [Suspect]
     Indication: HYPERTENSION
     Dosage: 20 MG, QD
     Route: 065
  9. LEVOFLOXACIN [Suspect]
     Indication: BACTERIAL INFECTION
     Dosage: 500 MG/DAY
     Route: 048
  10. INSULIN [Interacting]
     Indication: TYPE 2 DIABETES MELLITUS
     Dosage: UNK
     Route: 065
  11. ENALAPRIL MALEATE AND HYDROCHLOROTHIAZIDE [Suspect]
     Indication: HYPERTENSION
     Dosage: 20 MG/12.5 MG, QD
     Route: 048

REACTIONS (5)
  - HYPOGLYCAEMIA [None]
  - COMA [None]
  - DRUG INTERACTION [None]
  - ARTERIAL THROMBOSIS LIMB [None]
  - CONDITION AGGRAVATED [None]
